FAERS Safety Report 23417374 (Version 1)
Quarter: 2024Q1

REPORT INFORMATION
  Report Type: Spontaneous
  Country: US (occurrence: None)
  Receive Date: 20240117
  Receipt Date: 20240117
  Transmission Date: 20240410
  Serious: No
  Sender: FDA-Public Use
  Company Number: None

PATIENT
  Age: 25 Year
  Sex: Female

DRUGS (2)
  1. CEPHALEXIN [Suspect]
     Active Substance: CEPHALEXIN
     Dosage: FREQUENCY : TWICE A DAY;?
     Route: 048
     Dates: start: 20240116, end: 20240117
  2. PHENAZOPYRIDINE [Concomitant]
     Dates: start: 20240116

REACTIONS (1)
  - Lip swelling [None]

NARRATIVE: CASE EVENT DATE: 20240117
